FAERS Safety Report 6080247-1 (Version None)
Quarter: 2009Q1

REPORT INFORMATION
  Report Type: 
  Country: None (occurrence: None)
  Receive Date: 20090217
  Receipt Date: 20090209
  Transmission Date: 20090719
  Serious: Yes (Hospitalization)
  Sender: FDA-Public Use
  Company Number: US-CELGENEUS-163-20785-09020599

PATIENT
  Sex: Male

DRUGS (1)
  1. THALOMID [Suspect]
     Route: 048
     Dates: start: 20081104

REACTIONS (3)
  - ASCITES [None]
  - INFECTION [None]
  - PORTAL HYPERTENSION [None]
